FAERS Safety Report 15126142 (Version 14)
Quarter: 2021Q1

REPORT INFORMATION
  Report Type: Report from Study
  Country: None (occurrence: NL)
  Receive Date: 20180710
  Receipt Date: 20210208
  Transmission Date: 20210419
  Serious: Yes (Hospitalization)
  Sender: FDA-Public Use
  Company Number: NL-ABBVIE-18K-114-2242133-00

PATIENT
  Sex: Male
  Weight: 93 kg

DRUGS (7)
  1. DUODOPA [Suspect]
     Active Substance: CARBIDOPA\LEVODOPA
     Indication: PARKINSON^S DISEASE
     Dosage: MD: 12.9, CD: 4.9, ED: 5, CND: 2.6, END: 2.5
     Route: 050
     Dates: start: 20160613, end: 2018
  2. CLOZAPINE. [Concomitant]
     Active Substance: CLOZAPINE
     Indication: PRODUCT USED FOR UNKNOWN INDICATION
  3. EXELON [Concomitant]
     Active Substance: RIVASTIGMINE TARTRATE
     Indication: PRODUCT USED FOR UNKNOWN INDICATION
  4. DUODOPA [Suspect]
     Active Substance: CARBIDOPA\LEVODOPA
     Dosage: MD: 12.9, CD: 5.3, ED: 5.0, CND: 2.8, END: 2.5,24 HOUR ADMINISTRATION
     Route: 050
  5. DUODOPA [Suspect]
     Active Substance: CARBIDOPA\LEVODOPA
     Dosage: MORNING DOSE 12.9 CONTINUOUS DOSE 5.1 EXTRA DOSE 5.0
     Route: 050
     Dates: start: 20180612
  6. DUODOPA [Suspect]
     Active Substance: CARBIDOPA\LEVODOPA
     Dosage: DAY?PUMP: MD 3.5 CDD 4.5 EDN: 1.8 NIGHT?PUMP: MD 0.0 CDN 3.3 EDN 1.8
     Route: 050
  7. DUODOPA [Suspect]
     Active Substance: CARBIDOPA\LEVODOPA
     Dosage: MD 12.9, CD 5.3, ED 5.0, NIGHT CD 3.0, ED 2.5
     Route: 050
     Dates: start: 20180612

REACTIONS (41)
  - General physical health deterioration [Not Recovered/Not Resolved]
  - Anger [Not Recovered/Not Resolved]
  - Fall [Not Recovered/Not Resolved]
  - Emotional disorder [Recovering/Resolving]
  - Disturbance in attention [Unknown]
  - Fibroma [Not Recovered/Not Resolved]
  - Fall [Recovered/Resolved]
  - Stoma site discharge [Recovered/Resolved]
  - Bowel movement irregularity [Not Recovered/Not Resolved]
  - General physical health deterioration [Unknown]
  - Walking aid user [Not Recovered/Not Resolved]
  - Stoma site inflammation [Recovered/Resolved]
  - Therapeutic product effect incomplete [Not Recovered/Not Resolved]
  - Tension [Not Recovered/Not Resolved]
  - Mobility decreased [Not Recovered/Not Resolved]
  - Gait disturbance [Not Recovered/Not Resolved]
  - Abnormal dreams [Not Recovered/Not Resolved]
  - Cognitive disorder [Not Recovered/Not Resolved]
  - Balance disorder [Not Recovered/Not Resolved]
  - Daydreaming [Not Recovered/Not Resolved]
  - Memory impairment [Not Recovered/Not Resolved]
  - Muscle rigidity [Not Recovered/Not Resolved]
  - Dementia [Not Recovered/Not Resolved]
  - Freezing phenomenon [Unknown]
  - Dyskinesia [Recovered/Resolved]
  - Weight increased [Not Recovered/Not Resolved]
  - Speech disorder [Unknown]
  - Obsessive-compulsive disorder [Unknown]
  - Stoma site haemorrhage [Recovered/Resolved]
  - Stoma site discomfort [Recovering/Resolving]
  - Musculoskeletal stiffness [Not Recovered/Not Resolved]
  - Fatigue [Unknown]
  - Abnormal faeces [Recovered/Resolved]
  - Restlessness [Recovering/Resolving]
  - Depressed mood [Not Recovered/Not Resolved]
  - Cognitive disorder [Unknown]
  - Quality of life decreased [Unknown]
  - Unevaluable event [Not Recovered/Not Resolved]
  - Hallucination [Not Recovered/Not Resolved]
  - Sleep disorder [Unknown]
  - On and off phenomenon [Unknown]

NARRATIVE: CASE EVENT DATE: 2018
